FAERS Safety Report 9190096 (Version 1)
Quarter: 2013Q1

REPORT INFORMATION
  Report Type: Spontaneous
  Country: US (occurrence: None)
  Receive Date: 20130325
  Receipt Date: 20130325
  Transmission Date: 20140127
  Serious: Yes (Life-Threatening)
  Sender: FDA-Public Use
  Company Number: None

PATIENT
  Age: 54 Year
  Sex: Female
  Weight: 69.85 kg

DRUGS (2)
  1. AUGMENTIN [Suspect]
     Indication: SINUSITIS
     Route: 048
     Dates: start: 20130308, end: 20130317
  2. AUGMENTIN [Suspect]
     Indication: NO THERAPEUTIC RESPONSE
     Route: 048
     Dates: start: 20130308, end: 20130317

REACTIONS (6)
  - Faeces pale [None]
  - Chromaturia [None]
  - Pruritus [None]
  - Drug-induced liver injury [None]
  - Hepatitis cholestatic [None]
  - Liver function test abnormal [None]
